FAERS Safety Report 12596833 (Version 1)
Quarter: 2016Q3

REPORT INFORMATION
  Report Type: Spontaneous
  Country: CA (occurrence: CA)
  Receive Date: 20160726
  Receipt Date: 20160726
  Transmission Date: 20161109
  Serious: Yes (Other)
  Sender: FDA-Public Use
  Company Number: CA-FRESENIUS KABI-FK201604792

PATIENT
  Sex: Male
  Weight: 77 kg

DRUGS (1)
  1. HALOPERIDOL INJECTION (MANUFACTURER UNKNOWN) [Suspect]
     Active Substance: HALOPERIDOL LACTATE
     Indication: AGITATION
     Route: 030

REACTIONS (3)
  - Lip swelling [Recovered/Resolved]
  - Laryngospasm [Recovered/Resolved]
  - Torticollis [Recovered/Resolved]
